FAERS Safety Report 9302716 (Version 1)
Quarter: 2013Q2

REPORT INFORMATION
  Report Type: Spontaneous
  Country: US (occurrence: None)
  Receive Date: 20130517
  Receipt Date: 20130517
  Transmission Date: 20140414
  Serious: Yes (Other)
  Sender: FDA-Public Use
  Company Number: ADR-2013-00841

PATIENT
  Age: 57 Year
  Sex: Female

DRUGS (3)
  1. BACLOFEN INTRATHECAL [Suspect]
  2. BACLOFEN INTRATHECAL [Suspect]
     Indication: DYSTONIA
  3. SUFENTANIL [Concomitant]

REACTIONS (2)
  - Fall [None]
  - Upper limb fracture [None]
